FAERS Safety Report 9686654 (Version 1)
Quarter: 2013Q4

REPORT INFORMATION
  Report Type: Spontaneous
  Country: DE (occurrence: DE)
  Receive Date: 20131113
  Receipt Date: 20131113
  Transmission Date: 20140711
  Serious: Yes (Other)
  Sender: FDA-Public Use
  Company Number: DE-ASTRAZENECA-2013SE81166

PATIENT
  Age: 45 Year
  Sex: Female

DRUGS (4)
  1. SEROQUEL [Suspect]
     Route: 048
     Dates: start: 20130503
  2. STANGYL [Interacting]
     Route: 048
     Dates: start: 20130503
  3. DOMINAL [Interacting]
     Route: 048
     Dates: start: 20130503, end: 20130503
  4. ABILIFY [Concomitant]
     Route: 048

REACTIONS (2)
  - Drug interaction [Unknown]
  - Circulatory collapse [Recovered/Resolved]
